FAERS Safety Report 6635022-3 (Version None)
Quarter: 2010Q1

REPORT INFORMATION
  Report Type: 
  Country: None (occurrence: None)
  Receive Date: 20100311
  Receipt Date: 20100311
  Transmission Date: 20100710
  Serious: No
  Sender: FDA-Public Use
  Company Number: None

PATIENT
  Age: 41 Year
  Sex: Female
  Weight: 70.3075 kg

DRUGS (1)
  1. VALACYCLOVIR HCL [Suspect]
     Dosage: 500MG DAILY PO, SEVERAL WEEKS
     Route: 048
     Dates: start: 20100215, end: 20100304

REACTIONS (3)
  - DISEASE RECURRENCE [None]
  - GENITAL HERPES [None]
  - PRODUCT SUBSTITUTION ISSUE [None]
